FAERS Safety Report 18931395 (Version 2)
Quarter: 2021Q1

REPORT INFORMATION
  Report Type: Spontaneous
  Country: JP (occurrence: JP)
  Receive Date: 20210224
  Receipt Date: 20210226
  Transmission Date: 20210420
  Serious: Yes (Other)
  Sender: FDA-Public Use
  Company Number: JP-JNJFOC-20210207038

PATIENT
  Age: 40 Year
  Sex: Male

DRUGS (3)
  1. REMICADE [Suspect]
     Active Substance: INFLIXIMAB
     Indication: CROHN^S DISEASE
     Route: 042
  2. ENTYVIO [Concomitant]
     Active Substance: VEDOLIZUMAB
     Route: 065
  3. STELARA [Suspect]
     Active Substance: USTEKINUMAB
     Indication: CROHN^S DISEASE
     Route: 058

REACTIONS (9)
  - Sexual dysfunction [Unknown]
  - Dyspnoea [Unknown]
  - Arrhythmia [Unknown]
  - Choking sensation [Unknown]
  - Drug ineffective [Unknown]
  - Postural orthostatic tachycardia syndrome [Unknown]
  - Autonomic nervous system imbalance [Unknown]
  - Atrial fibrillation [Unknown]
  - Adverse reaction [Unknown]
